FAERS Safety Report 7304141-0 (Version None)
Quarter: 2011Q1

REPORT INFORMATION
  Report Type: 
  Country: None (occurrence: None)
  Receive Date: 20110221
  Receipt Date: 20110218
  Transmission Date: 20110831
  Serious: Yes (Death)
  Sender: FDA-Public Use
  Company Number: HU-ABBOTT-10P-076-0648576-00

PATIENT
  Sex: Male
  Weight: 94.5 kg

DRUGS (3)
  1. SULFASALAZINE [Concomitant]
     Indication: RHEUMATOID ARTHRITIS
     Route: 048
     Dates: start: 20030101, end: 20100515
  2. HUMIRA [Suspect]
     Indication: RHEUMATOID ARTHRITIS
     Route: 058
     Dates: start: 20090915, end: 20100515
  3. DICLOFENAC [Concomitant]
     Indication: RHEUMATOID ARTHRITIS
     Route: 048
     Dates: start: 20090305, end: 20091011

REACTIONS (2)
  - SUDDEN DEATH [None]
  - ACUTE MYOCARDIAL INFARCTION [None]
